FAERS Safety Report 8190617-3 (Version None)
Quarter: 2012Q1

REPORT INFORMATION
  Report Type: 
  Country: None (occurrence: None)
  Receive Date: 20120307
  Receipt Date: 20120222
  Transmission Date: 20120608
  Serious: Yes (Other)
  Sender: FDA-Public Use
  Company Number: DE-UCBSA-040848

PATIENT
  Sex: Male

DRUGS (2)
  1. CERTOLIZUMAB PEGOL [Suspect]
     Indication: RHEUMATOID ARTHRITIS
     Route: 058
     Dates: start: 20110608
  2. PREDNISOLONE [Concomitant]
     Indication: POLYARTHRITIS
     Dosage: FREQUENCY: 1
     Route: 048
     Dates: start: 19890101

REACTIONS (1)
  - HIP SURGERY [None]
